FAERS Safety Report 19421165 (Version 2)
Quarter: 2021Q3

REPORT INFORMATION
  Report Type: Spontaneous
  Country: AR (occurrence: AR)
  Receive Date: 20210615
  Receipt Date: 20210702
  Transmission Date: 20211014
  Serious: Yes (Other)
  Sender: FDA-Public Use
  Company Number: AR-PFIZER INC-2021650069

PATIENT
  Age: 76 Year
  Sex: Female

DRUGS (2)
  1. IBRANCE [Suspect]
     Active Substance: PALBOCICLIB
     Indication: BREAST CANCER METASTATIC
     Dosage: 125 MG, CYCLIC (DAILY, SCHEME 3X1)
     Dates: start: 20191115
  2. NEURYL [PREGABALIN] [Concomitant]
     Dosage: 2 MG

REACTIONS (9)
  - Sensitivity to weather change [Unknown]
  - Pain in extremity [Unknown]
  - Second primary malignancy [Unknown]
  - Tumour pain [Unknown]
  - Spinal deformity [Unknown]
  - Osteoporosis [Unknown]
  - Renal neoplasm [Unknown]
  - Breast pain [Unknown]
  - Pain [Unknown]

NARRATIVE: CASE EVENT DATE: 2021
